FAERS Safety Report 8018355-8 (Version None)
Quarter: 2012Q1

REPORT INFORMATION
  Report Type: 
  Country: None (occurrence: None)
  Receive Date: 20120103
  Receipt Date: 20111229
  Transmission Date: 20120608
  Serious: Yes (Hospitalization, Congenital Anomaly, Other)
  Sender: FDA-Public Use
  Company Number: US-PFIZER INC-2011105418

PATIENT
  Sex: Male
  Weight: 3.6 kg

DRUGS (8)
  1. RISPERDAL [Concomitant]
     Dosage: 0.25 MG, UNK
     Route: 064
  2. GABAPENTIN [Concomitant]
     Dosage: UNK
     Route: 064
     Dates: end: 20070805
  3. MULTI-VITAMINS [Concomitant]
     Dosage: UNK
     Route: 064
     Dates: end: 20080407
  4. PREDNISONE [Concomitant]
     Dosage: UNK
     Route: 064
     Dates: end: 20070805
  5. XANAX [Concomitant]
     Dosage: 0.25 MG, 2X/DAY
     Route: 064
     Dates: start: 20070508
  6. EFFEXOR XR [Suspect]
     Indication: ANXIETY
     Dosage: UNK, DAILY
     Route: 064
     Dates: start: 20080408
  7. EFFEXOR XR [Suspect]
     Indication: DEPRESSION
     Dosage: 150 MG, 1X/DAY
     Route: 064
     Dates: start: 20070508, end: 20070805
  8. TRAZODONE [Concomitant]
     Dosage: 25 MG, UNK
     Route: 064

REACTIONS (21)
  - AORTIC VALVE INCOMPETENCE [None]
  - PULMONARY VALVE INCOMPETENCE [None]
  - PULMONARY ARTERY STENOSIS [None]
  - NEONATAL ASPIRATION [None]
  - PULMONARY HYPERTENSION [None]
  - TORTICOLLIS [None]
  - SEPSIS [None]
  - RIGHT VENTRICULAR HYPERTROPHY [None]
  - COUGH [None]
  - RHINITIS [None]
  - ATRIAL SEPTAL DEFECT [None]
  - LEFT VENTRICULAR HYPERTROPHY [None]
  - OTITIS MEDIA ACUTE [None]
  - HYPOTONIA [None]
  - RESPIRATORY DISTRESS [None]
  - TRANSPOSITION OF THE GREAT VESSELS [None]
  - PNEUMOTHORAX [None]
  - FOETAL EXPOSURE DURING PREGNANCY [None]
  - PATENT DUCTUS ARTERIOSUS [None]
  - PERICARDIAL EFFUSION [None]
  - SNORING [None]
